FAERS Safety Report 12660066 (Version 2)
Quarter: 2017Q2

REPORT INFORMATION
  Report Type: Report from Study
  Country: US (occurrence: US)
  Receive Date: 20160817
  Receipt Date: 20170607
  Transmission Date: 20170830
  Serious: Yes (Death, Other)
  Sender: FDA-Public Use
  Company Number: US-PFIZER INC-2016386680

PATIENT

DRUGS (1)
  1. FOSCARNET SODIUM. [Suspect]
     Active Substance: FOSCARNET SODIUM
     Indication: CYTOMEGALOVIRUS INFECTION
     Dosage: UNK

REACTIONS (2)
  - Drug ineffective [Fatal]
  - Sepsis [Fatal]
